FAERS Safety Report 10186731 (Version 1)
Quarter: 2014Q2

REPORT INFORMATION
  Report Type: Report from Study
  Country: NL (occurrence: NL)
  Receive Date: 20140521
  Receipt Date: 20140521
  Transmission Date: 20141212
  Serious: Yes (Other)
  Sender: FDA-Public Use
  Company Number: PHHY2014NL059249

PATIENT
  Age: 66 Year
  Sex: Female

DRUGS (3)
  1. ACLASTA [Suspect]
     Indication: OSTEOPOROSIS
     Dosage: 5 MG, (1X PER 52 WEEKS)
     Route: 042
     Dates: start: 20120508
  2. ACLASTA [Suspect]
     Dosage: 5 MG, (1X PER 52 WEEKS)
     Route: 042
     Dates: start: 20130510
  3. ACLASTA [Suspect]
     Dosage: 5 MG, (1X PER 52 WEEKS)
     Route: 042
     Dates: start: 20140513

REACTIONS (1)
  - Vitreous floaters [Recovering/Resolving]
